FAERS Safety Report 5890132-3 (Version None)
Quarter: 2008Q3

REPORT INFORMATION
  Report Type: 
  Country: None (occurrence: None)
  Receive Date: 20080919
  Receipt Date: 20080910
  Transmission Date: 20090109
  Serious: Yes (Hospitalization, Other)
  Sender: FDA-Public Use
  Company Number: FR-WYE-H06026708

PATIENT
  Sex: Female

DRUGS (19)
  1. CORDARONE [Suspect]
     Indication: ATRIAL FIBRILLATION
     Route: 048
     Dates: end: 20080812
  2. LOVENOX [Suspect]
     Indication: THROMBOSIS PROPHYLAXIS
     Route: 058
     Dates: end: 20080807
  3. ZYVOXID [Suspect]
     Indication: OSTEITIS
     Route: 048
     Dates: start: 20080722, end: 20080806
  4. FUCIDINE CAP [Suspect]
     Indication: OSTEITIS
     Route: 048
     Dates: start: 20080722, end: 20080806
  5. OGAST [Suspect]
     Indication: GASTRITIS
     Route: 048
     Dates: end: 20080805
  6. LOXEN [Suspect]
     Indication: HYPERTENSION
     Dosage: UNKNOWN
     Route: 048
     Dates: end: 20080814
  7. MACROGOL [Concomitant]
     Dosage: UNKNOWN
     Dates: end: 20080812
  8. OXYBUTYNIN [Concomitant]
     Dosage: UNKNOWN
     Dates: end: 20080812
  9. DOMPERIDONE [Concomitant]
     Dosage: UNKNOWN
     Dates: end: 20080812
  10. BUFLOMEDIL [Concomitant]
     Dosage: UNKNOWN
     Dates: end: 20080814
  11. METOCLOPRAMIDE [Concomitant]
     Dosage: UNKNOWN
     Dates: end: 20080814
  12. TEICOPLANIN [Concomitant]
     Dosage: UNKNOWN
     Dates: end: 20080814
  13. TEICOPLANIN [Concomitant]
     Dosage: UNKNOWN
     Dates: start: 20080801
  14. LEVOTHYROXINE SODIUM [Concomitant]
     Dosage: UNKNOWN
     Dates: end: 20080814
  15. LEVOTHYROXINE SODIUM [Concomitant]
     Dosage: UNKNOWN
     Dates: start: 20080801
  16. POTASSIUM CHLORIDE [Concomitant]
     Dosage: UNKNOWN
     Dates: end: 20080812
  17. POTASSIUM CHLORIDE [Concomitant]
     Dosage: UNKNOWN
     Dates: start: 20080801, end: 20080814
  18. POTASSIUM CHLORIDE [Concomitant]
     Dosage: UNKNOWN
     Dates: start: 20080801
  19. LASIX [Suspect]
     Indication: HYPERTENSION
     Route: 048
     Dates: end: 20080812

REACTIONS (3)
  - ATRIOVENTRICULAR BLOCK [None]
  - JAUNDICE CHOLESTATIC [None]
  - THROMBOCYTOPENIA [None]
